FAERS Safety Report 16363495 (Version 1)
Quarter: 2019Q2

REPORT INFORMATION
  Report Type: Report from Study
  Country: CA (occurrence: CA)
  Receive Date: 20190528
  Receipt Date: 20190528
  Transmission Date: 20190711
  Serious: Yes (Other)
  Sender: FDA-Public Use
  Company Number: CA-JNJFOC-20190535716

PATIENT
  Age: 65 Year
  Sex: Male
  Weight: 114 kg

DRUGS (1)
  1. REMICADE [Suspect]
     Active Substance: INFLIXIMAB
     Indication: COLITIS ULCERATIVE
     Dosage: STRENGTH = 100 MG
     Route: 042
     Dates: start: 20110317, end: 20190524

REACTIONS (1)
  - Cutaneous lymphoma [Unknown]

NARRATIVE: CASE EVENT DATE: 20190523
